FAERS Safety Report 4911780-0 (Version None)
Quarter: 2006Q1

REPORT INFORMATION
  Report Type: 
  Country: None (occurrence: None)
  Receive Date: 20060213
  Receipt Date: 20060213
  Transmission Date: 20060701
  Serious: Yes (Other)
  Sender: FDA-Public Use
  Company Number: None

PATIENT
  Age: 37 Year
  Sex: Female
  Weight: 58.9676 kg

DRUGS (1)
  1. FOSAMAX [Suspect]
     Indication: OSTEOPENIA
     Dosage: 1 PILL    ONCE/WEEK     PO
     Route: 048

REACTIONS (4)
  - ABDOMINAL DISCOMFORT [None]
  - HEADACHE [None]
  - JOINT STIFFNESS [None]
  - MYALGIA [None]
